FAERS Safety Report 19261789 (Version 3)
Quarter: 2021Q2

REPORT INFORMATION
  Report Type: Report from Study
  Country: IL (occurrence: IL)
  Receive Date: 20210515
  Receipt Date: 20210601
  Transmission Date: 20210717
  Serious: Yes (Hospitalization)
  Sender: FDA-Public Use
  Company Number: IL-JNJFOC-20201029483

PATIENT
  Age: 69 Year
  Sex: Female
  Weight: 61 kg

DRUGS (53)
  1. RIVAROXABAN [Suspect]
     Active Substance: RIVAROXABAN
     Indication: CARDIOVASCULAR EVENT PROPHYLAXIS
     Dosage: 2.5 MG, BID
     Route: 048
     Dates: start: 20200610, end: 20201006
  2. QUETIAPINE. [Concomitant]
     Active Substance: QUETIAPINE
     Dosage: 25 MG, BID
     Dates: start: 20200629
  3. VASODIP [Concomitant]
     Active Substance: LERCANIDIPINE HYDROCHLORIDE
     Dosage: 10 MG, QD
     Dates: start: 20170622, end: 20200607
  4. DOXAZOSIN [Concomitant]
     Active Substance: DOXAZOSIN MESYLATE
     Dosage: 4 MG, BID
     Dates: start: 20201007, end: 20201008
  5. PROLIA [Concomitant]
     Active Substance: DENOSUMAB
     Dosage: 60 MG, QD
     Dates: start: 20200301, end: 20200301
  6. PROLIA [Concomitant]
     Active Substance: DENOSUMAB
     Dosage: 60 MG, QD
     Dates: start: 20200924, end: 20200924
  7. RADIAN?B [Concomitant]
     Dosage: 1 DF, BID
     Dates: start: 20200909
  8. FUROSEMIDE. [Concomitant]
     Active Substance: FUROSEMIDE
     Dosage: 40 MG, QD
     Dates: start: 20200802, end: 202009
  9. TICAGRELOR. [Concomitant]
     Active Substance: TICAGRELOR
     Dosage: 90 MG, BID
     Dates: start: 20201006, end: 20201007
  10. ZAPPA [Concomitant]
     Dosage: 5 MG, QD
     Dates: start: 20141211, end: 20190709
  11. EZETIMIBE. [Concomitant]
     Active Substance: EZETIMIBE
     Dosage: 10 MG, QD
     Dates: start: 20170116
  12. CIPROFLOXACIN HYDROCHLORIDE. [Concomitant]
     Active Substance: CIPROFLOXACIN HYDROCHLORIDE
     Dosage: 500 MG, BID
     Dates: start: 20200607, end: 20200612
  13. RIVAROXABAN [Suspect]
     Active Substance: RIVAROXABAN
     Indication: CORONARY ARTERY DISEASE
     Dosage: 2.5 MG, BID
     Route: 048
     Dates: start: 20191231, end: 20200324
  14. ASA [Suspect]
     Active Substance: ASPIRIN
     Indication: PERIPHERAL ARTERIAL OCCLUSIVE DISEASE
     Dosage: 100 MG, QD
     Dates: start: 20201209
  15. CLOPIDOGREL [Concomitant]
     Active Substance: CLOPIDOGREL BISULFATE
     Dosage: 75 MG, QD
     Dates: start: 20201206
  16. LAMOTRIGINE. [Concomitant]
     Active Substance: LAMOTRIGINE
     Dosage: 300 MG, QD
     Dates: start: 20191111
  17. CARDILOC [Concomitant]
     Active Substance: BISOPROLOL FUMARATE
     Dosage: 2.5 MG, TID
     Dates: start: 20190106, end: 20200902
  18. SOLPADEINE [CAFFEINE;CODEINE PHOSPHATE;PARACETAMOL] [Concomitant]
     Dosage: 1 DF, BID
     Dates: start: 20200909
  19. ARIXTRA [Concomitant]
     Active Substance: FONDAPARINUX SODIUM
     Dosage: 2.5 MG, QD
     Dates: start: 20201006, end: 20201006
  20. ACETYLCYSTEIN [Concomitant]
     Active Substance: ACETYLCYSTEINE
     Dosage: 200 MG, TID
     Dates: start: 20200706, end: 20200726
  21. BROMHEXINE [Concomitant]
     Active Substance: BROMHEXINE
     Dosage: 2 MG, TID
     Dates: start: 20200706, end: 20200716
  22. MONURAL [Concomitant]
     Dosage: 3 G, QD
     Dates: start: 20201201, end: 20201201
  23. AMLODIPINE [Concomitant]
     Active Substance: AMLODIPINE BESYLATE
     Dosage: 5 MG, PRN
     Dates: start: 20201202, end: 20201208
  24. QUETIAPINE. [Concomitant]
     Active Substance: QUETIAPINE
     Dosage: 25 MG, QD
     Dates: start: 20191105, end: 20200628
  25. LAMOTRIGINE. [Concomitant]
     Active Substance: LAMOTRIGINE
     Dosage: 100 MG, QD
     Dates: start: 20150630, end: 20191110
  26. BONDORMIN [Concomitant]
     Active Substance: BROTIZOLAM
     Dosage: 0.25 MG, QD
     Dates: start: 20141216
  27. CARDILOC [Concomitant]
     Active Substance: BISOPROLOL FUMARATE
     Dosage: 1.25 MG, QD
     Dates: start: 20201007
  28. OCSAAR [LOSARTAN] [Concomitant]
     Dosage: 50 MG, QD
     Dates: start: 20200625
  29. DOXAZOSIN [Concomitant]
     Active Substance: DOXAZOSIN MESYLATE
     Dosage: 2 MG, QD
     Dates: start: 20201009
  30. IPRATROPIUM BROMIDE. [Concomitant]
     Active Substance: IPRATROPIUM BROMIDE
     Dosage: 20 ML, TID
     Dates: start: 20200706, end: 20200716
  31. LABETALOL [Concomitant]
     Active Substance: LABETALOL\LABETALOL HYDROCHLORIDE
     Dosage: 5 MG/ML PRN
     Dates: start: 20201202, end: 20201208
  32. ASA [Suspect]
     Active Substance: ASPIRIN
     Indication: CORONARY ARTERY DISEASE
     Dosage: 300 MG, UNK
     Dates: start: 20201202, end: 20201208
  33. OPTALGIN [Concomitant]
     Active Substance: METAMIZOLE
     Dosage: 1000 MG, QD
     Dates: start: 20201008, end: 20201008
  34. CEFUROXIME. [Concomitant]
     Active Substance: CEFUROXIME
     Dosage: 500 MG, BID
     Dates: start: 20200706, end: 20200716
  35. RIVAROXABAN [Suspect]
     Active Substance: RIVAROXABAN
     Indication: CORONARY ARTERY DISEASE
     Dosage: 2.5 MG, QD
     Route: 048
     Dates: start: 20201008, end: 20201204
  36. LOSEC [Concomitant]
     Active Substance: OMEPRAZOLE
     Dosage: 20 MG, QD
     Dates: start: 20190106, end: 201906
  37. CARDILOC [Concomitant]
     Active Substance: BISOPROLOL FUMARATE
     Dosage: 0.625 MG, QD
     Dates: start: 20200903, end: 20200909
  38. DOXAZOSIN [Concomitant]
     Active Substance: DOXAZOSIN MESYLATE
     Dosage: 2 MG, QD
     Dates: start: 20200614, end: 20201006
  39. RIVAROXABAN [Suspect]
     Active Substance: RIVAROXABAN
     Indication: PERIPHERAL ARTERIAL OCCLUSIVE DISEASE
     Dosage: 2.5 MG, BID
     Route: 048
     Dates: start: 20200327, end: 20200607
  40. ASA [Suspect]
     Active Substance: ASPIRIN
     Indication: CARDIOVASCULAR EVENT PROPHYLAXIS
     Dosage: 100 MG, QD
     Route: 065
     Dates: start: 20070510, end: 20201202
  41. ZAPPA [Concomitant]
     Dosage: 7.5 MG, QD
     Dates: start: 20190710
  42. SODIUM CHLORIDE. [Concomitant]
     Active Substance: SODIUM CHLORIDE
     Dosage: 1000 ML, QD
     Dates: start: 20200521, end: 20200521
  43. LORIVAN [Concomitant]
     Active Substance: LORAZEPAM
     Dosage: 1 MG, QD
     Dates: start: 20200629
  44. MACRODANTIN [Concomitant]
     Active Substance: NITROFURANTOIN
     Dosage: 100 MG, AS NEEDED
     Dates: start: 20200301
  45. CLOPIDOGREL [Concomitant]
     Active Substance: CLOPIDOGREL BISULFATE
     Dosage: 75 MG, QD
     Dates: start: 20181231, end: 20191230
  46. CRESTOR [Concomitant]
     Active Substance: ROSUVASTATIN CALCIUM
     Dosage: 40 MG, QD
     Dates: start: 20190710
  47. VASODIP [Concomitant]
     Active Substance: LERCANIDIPINE HYDROCHLORIDE
     Dosage: 10 MG, BID
     Dates: start: 20200608
  48. OCSAAR [LOSARTAN] [Concomitant]
     Dosage: 50 MG, BID
     Dates: start: 20181223, end: 20200624
  49. MEMOX [Concomitant]
     Dosage: 10 MG, QD
     Dates: start: 20171124
  50. OLANZAPINE. [Concomitant]
     Active Substance: OLANZAPINE
     Dosage: 5 MG, QD
     Dates: start: 20150816
  51. SODIUM CHLORIDE. [Concomitant]
     Active Substance: SODIUM CHLORIDE
     Dosage: 1000 ML
     Dates: start: 20201008, end: 20201008
  52. SODIUM CHLORIDE. [Concomitant]
     Active Substance: SODIUM CHLORIDE
     Dosage: 0.9 %, TID
     Dates: start: 20200706, end: 20200716
  53. DOXAZOSIN [Concomitant]
     Active Substance: DOXAZOSIN MESYLATE
     Dosage: 2 MG, BID
     Dates: start: 20200611, end: 20200613

REACTIONS (3)
  - Myocardial infarction [Recovered/Resolved]
  - Medication error [Recovered/Resolved]
  - Chest pain [Recovered/Resolved]

NARRATIVE: CASE EVENT DATE: 20201006
